FAERS Safety Report 5865168-9 (Version None)
Quarter: 2008Q3

REPORT INFORMATION
  Report Type: 
  Country: None (occurrence: None)
  Receive Date: 20080829
  Receipt Date: 20080826
  Transmission Date: 20090109
  Serious: Yes (Hospitalization)
  Sender: FDA-Public Use
  Company Number: A0745182A

PATIENT
  Age: 58 Year
  Sex: Male
  Weight: 99.1 kg

DRUGS (6)
  1. AVANDIA [Suspect]
     Dosage: 8MG TWICE PER DAY
     Route: 048
     Dates: end: 20080402
  2. GLYBURIDE [Concomitant]
  3. METFORMIN HCL [Concomitant]
     Dates: start: 19960101
  4. AMIODARONE [Concomitant]
  5. METOPROLOL TARTRATE [Concomitant]
  6. DIABETA [Concomitant]
     Dates: start: 19980101

REACTIONS (2)
  - ATRIAL FIBRILLATION [None]
  - CEREBRAL INFARCTION [None]
